FAERS Safety Report 4505345-2 (Version None)
Quarter: 2004Q4

REPORT INFORMATION
  Report Type: 
  Country: None (occurrence: None)
  Receive Date: 20041116
  Receipt Date: 20041029
  Transmission Date: 20050328
  Serious: Yes (Hospitalization, Other)
  Sender: FDA-Public Use
  Company Number: 2004090318

PATIENT
  Age: 59 Year
  Sex: Male

DRUGS (4)
  1. NEURONTIN [Suspect]
     Indication: RADICULOPATHY
     Dosage: 2400 MG (800 MG, 3 IN 1 D)
     Dates: start: 20041001
  2. PARACETAMOL (PARACETAMOL) [Concomitant]
  3. ATORVASTATIN CALCIUM [Concomitant]
  4. PROPOFAN (CAFFEINE, CARBASALATE CALCIUM, CHLORPHENAMINE MALEATE, DEXTR [Suspect]

REACTIONS (3)
  - GAMMA-GLUTAMYLTRANSFERASE INCREASED [None]
  - MULTIPLE SCLEROSIS [None]
  - OEDEMA PERIPHERAL [None]
